FAERS Safety Report 20739050 (Version 1)
Quarter: 2022Q2

REPORT INFORMATION
  Report Type: Spontaneous
  Country: US (occurrence: US)
  Receive Date: 20220422
  Receipt Date: 20220422
  Transmission Date: 20220721
  Serious: No
  Sender: FDA-Public Use
  Company Number: US-NOVARTISTESTPH-NVSC2022US093061

PATIENT
  Age: 53 Year
  Sex: Female
  Weight: 52.15 kg

DRUGS (1)
  1. COMBIPATCH [Suspect]
     Active Substance: ESTRADIOL\NORETHINDRONE ACETATE
     Indication: Menopausal symptoms
     Dosage: UNK
     Route: 062
     Dates: start: 20220314

REACTIONS (8)
  - Eating disorder [Not Recovered/Not Resolved]
  - Constipation [Recovered/Resolved]
  - Weight increased [Not Recovered/Not Resolved]
  - Abdominal distension [Recovered/Resolved]
  - Hot flush [Recovered/Resolved]
  - Fluid retention [Recovered/Resolved]
  - Nausea [Recovered/Resolved]
  - Off label use [Not Recovered/Not Resolved]

NARRATIVE: CASE EVENT DATE: 20220314
